FAERS Safety Report 21775241 (Version 2)
Quarter: 2023Q2

REPORT INFORMATION
  Report Type: Report from Study
  Country: US (occurrence: US)
  Receive Date: 20221225
  Receipt Date: 20230530
  Transmission Date: 20230722
  Serious: Yes (Other)
  Sender: FDA-Public Use
  Company Number: US-ABBVIE-4244773

PATIENT
  Age: 0 Year

DRUGS (1)
  1. HUMIRA [Suspect]
     Active Substance: ADALIMUMAB
     Indication: Product used for unknown indication
     Dosage: FORM STRENGTH: 40 MILLIGRAM, PARENT PRODUCT
     Route: 058

REACTIONS (2)
  - Premature baby [Not Recovered/Not Resolved]
  - Haemangioma [Unknown]

NARRATIVE: CASE EVENT DATE: 20221201
